FAERS Safety Report 8576732-0 (Version None)
Quarter: 2012Q3

REPORT INFORMATION
  Report Type: 
  Country: None (occurrence: None)
  Receive Date: 20120807
  Receipt Date: 20120730
  Transmission Date: 20120928
  Serious: No
  Sender: FDA-Public Use
  Company Number: US-ASTRAZENECA-2012SE53769

PATIENT
  Sex: Female

DRUGS (1)
  1. NEXIUM [Suspect]
     Route: 048

REACTIONS (7)
  - GINGIVAL ERYTHEMA [None]
  - DRUG DOSE OMISSION [None]
  - VOMITING [None]
  - GLOSSODYNIA [None]
  - COUGH [None]
  - INTENTIONAL DRUG MISUSE [None]
  - NASAL DISCOMFORT [None]
